FAERS Safety Report 6912587-5 (Version None)
Quarter: 2010Q3

REPORT INFORMATION
  Report Type: 
  Country: None (occurrence: None)
  Receive Date: 20100806
  Receipt Date: 20080805
  Transmission Date: 20110219
  Serious: No
  Sender: FDA-Public Use
  Company Number: US-PFIZER INC-2008063508

PATIENT
  Sex: Male
  Weight: 100 kg

DRUGS (9)
  1. GLIPIZIDE [Suspect]
     Indication: DIABETES MELLITUS
     Dates: start: 20030101
  2. PRANDIN [Concomitant]
  3. FIBREPUR [Concomitant]
  4. DIGITEK [Concomitant]
  5. PLAVIX [Concomitant]
  6. WARFARIN SODIUM [Concomitant]
  7. MAGNESIUM [Concomitant]
  8. ACETYLSALICYLIC ACID SRT [Concomitant]
  9. ALL OTHER THERAPEUTIC PRODUCTS [Concomitant]

REACTIONS (1)
  - DRUG INEFFECTIVE [None]
